FAERS Safety Report 23251947 (Version 1)
Quarter: 2023Q4

REPORT INFORMATION
  Report Type: Report from Study
  Country: US (occurrence: US)
  Receive Date: 20231201
  Receipt Date: 20231201
  Transmission Date: 20240110
  Serious: Yes (Other)
  Sender: FDA-Public Use
  Company Number: US-ALXN-A202110828AA

PATIENT
  Age: 25 Year
  Sex: Female

DRUGS (1)
  1. STRENSIQ [Suspect]
     Active Substance: ASFOTASE ALFA
     Indication: Hypophosphatasia
     Dosage: UNK
     Route: 065

REACTIONS (15)
  - Hodgkin^s disease [Unknown]
  - Femur fracture [Unknown]
  - Pruritus [Unknown]
  - Rash macular [Unknown]
  - Therapy non-responder [Unknown]
  - Muscular weakness [Unknown]
  - Arthralgia [Unknown]
  - Vitamin B6 increased [Unknown]
  - Limb injury [Unknown]
  - Tendon injury [Unknown]
  - Off label use [Unknown]
  - Musculoskeletal disorder [Unknown]
  - Stress fracture [Unknown]
  - Fracture [Unknown]
  - Injection site reaction [Not Recovered/Not Resolved]

NARRATIVE: CASE EVENT DATE: 20210301
